FAERS Safety Report 19849492 (Version 1)
Quarter: 2021Q3

REPORT INFORMATION
  Report Type: Spontaneous
  Country: JP (occurrence: JP)
  Receive Date: 20210918
  Receipt Date: 20210918
  Transmission Date: 20211014
  Serious: Yes (Hospitalization, Other)
  Sender: FDA-Public Use
  Company Number: JP-MACLEODS PHARMACEUTICALS US LTD-MAC2017004854

PATIENT

DRUGS (4)
  1. OLMESARTAN [Suspect]
     Active Substance: OLMESARTAN
     Dosage: 30 MG, QD
     Route: 048
  2. OLMESARTAN [Suspect]
     Active Substance: OLMESARTAN
     Dosage: UNK
     Route: 065
     Dates: start: 201112
  3. AMLODIPINE [Concomitant]
     Active Substance: AMLODIPINE BESYLATE
     Indication: HYPERTENSION
     Dosage: 5 MILLIGRAM, QD
     Route: 048
     Dates: start: 2005
  4. OLMESARTAN [Suspect]
     Active Substance: OLMESARTAN
     Indication: HYPERTENSION
     Dosage: UNK
     Route: 065
     Dates: start: 200805

REACTIONS (22)
  - Decreased appetite [Recovered/Resolved]
  - Chronic gastritis [Recovered/Resolved]
  - Weight decreased [Recovered/Resolved]
  - Nystagmus [Recovered/Resolved]
  - Oedema [Recovered/Resolved]
  - Areflexia [Unknown]
  - Hypoaesthesia [Unknown]
  - Hyporeflexia [Unknown]
  - Nausea [Recovered/Resolved]
  - Encephalopathy [Unknown]
  - Gastrointestinal disorder [Recovered/Resolved]
  - Diarrhoea [Recovered/Resolved]
  - Gait disturbance [Recovered/Resolved]
  - Hyperchloraemia [Recovered/Resolved]
  - Abdominal distension [Recovered/Resolved]
  - Hypotension [Recovered/Resolved]
  - Wernicke-Korsakoff syndrome [Unknown]
  - Faeces soft [Recovered/Resolved]
  - Intestinal pseudo-obstruction [Recovered/Resolved]
  - Sinus tachycardia [Recovered/Resolved]
  - Vitamin B1 deficiency [Unknown]
  - Confabulation [Not Recovered/Not Resolved]

NARRATIVE: CASE EVENT DATE: 2011
